FAERS Safety Report 5290330-6 (Version None)
Quarter: 2007Q2

REPORT INFORMATION
  Report Type: 
  Country: None (occurrence: None)
  Receive Date: 20070409
  Receipt Date: 20070328
  Transmission Date: 20071010
  Serious: Yes (Other)
  Sender: FDA-Public Use
  Company Number: JP-ELI_LILLY_AND_COMPANY-JP200703002758

PATIENT
  Age: 71 Year
  Sex: Male
  Weight: 41 kg

DRUGS (2)
  1. GEMZAR [Suspect]
     Indication: MALIGNANT NEOPLASM OF RENAL PELVIS
     Dosage: 1200 MG, OTHER
     Route: 042
     Dates: start: 20070206, end: 20070306
  2. RANDA [Concomitant]
     Indication: MALIGNANT NEOPLASM OF RENAL PELVIS
     Dosage: 90 MG, OTHER
     Route: 042
     Dates: start: 20070206, end: 20070306

REACTIONS (1)
  - PLATELET COUNT INCREASED [None]
